FAERS Safety Report 17472336 (Version 2)
Quarter: 2020Q2

REPORT INFORMATION
  Report Type: Report from Study
  Country: CA (occurrence: CA)
  Receive Date: 20200228
  Receipt Date: 20200508
  Transmission Date: 20200713
  Serious: Yes (Other)
  Sender: FDA-Public Use
  Company Number: CA-REGENERON PHARMACEUTICALS, INC.-2020-21795

PATIENT

DRUGS (2)
  1. EYLEA [Suspect]
     Active Substance: AFLIBERCEPT
     Indication: RETINAL VEIN OCCLUSION
     Dosage: 1 DF, ONCE; 1ST INJECTION
     Dates: start: 20200218, end: 20200218
  2. EYLEA [Suspect]
     Active Substance: AFLIBERCEPT
     Dosage: UNK

REACTIONS (3)
  - Eye haemorrhage [Unknown]
  - Skin cancer [Not Recovered/Not Resolved]
  - Adverse event [Unknown]
